FAERS Safety Report 22061944 (Version 1)
Quarter: 2023Q1

REPORT INFORMATION
  Report Type: Spontaneous
  Country: US (occurrence: US)
  Receive Date: 20230304
  Receipt Date: 20230304
  Transmission Date: 20230418
  Serious: Yes (Hospitalization, Other)
  Sender: FDA-Public Use
  Company Number: US-MLMSERVICE-20230222-4110033-1

PATIENT
  Age: 15 Year
  Sex: Male
  Weight: 44.1 kg

DRUGS (2)
  1. MYCOPHENOLATE MOFETIL [Suspect]
     Active Substance: MYCOPHENOLATE MOFETIL
     Indication: Immunosuppressant drug therapy
  2. TACROLIMUS [Suspect]
     Active Substance: TACROLIMUS
     Indication: Immunosuppressant drug therapy

REACTIONS (4)
  - Acute kidney injury [Recovered/Resolved]
  - Histoplasmosis [Recovered/Resolved]
  - Hypervolaemia [Recovering/Resolving]
  - Hypercalcaemia [Recovered/Resolved]
